FAERS Safety Report 6446104-3 (Version None)
Quarter: 2009Q4

REPORT INFORMATION
  Report Type: 
  Country: None (occurrence: None)
  Receive Date: 20091119
  Receipt Date: 20091109
  Transmission Date: 20100525
  Serious: No
  Sender: FDA-Public Use
  Company Number: US-JNJFOC-20091103339

PATIENT
  Sex: Female
  Weight: 69.4 kg

DRUGS (3)
  1. DURAGESIC-100 [Suspect]
     Indication: CYSTITIS INTERSTITIAL
     Route: 062
  2. HORMONES [Concomitant]
     Route: 048
  3. ATARAX [Concomitant]
     Indication: CYSTITIS
     Dosage: 1 PER NIGHT
     Route: 048

REACTIONS (2)
  - APPLICATION SITE REACTION [None]
  - DRUG ADMINISTERED AT INAPPROPRIATE SITE [None]
